FAERS Safety Report 18268172 (Version 1)
Quarter: 2020Q3

REPORT INFORMATION
  Report Type: Spontaneous
  Country: DE (occurrence: DE)
  Receive Date: 20200915
  Receipt Date: 20200915
  Transmission Date: 20201103
  Serious: Yes (Hospitalization, Congenital Anomaly, Other)
  Sender: FDA-Public Use
  Company Number: DE-MYLANLABS-2020M1077584

PATIENT
  Age: 1 Day
  Sex: Female
  Weight: 2.2 kg

DRUGS (2)
  1. CANDESARTAN. [Suspect]
     Active Substance: CANDESARTAN
     Indication: HYPERTENSION
     Dosage: 16 [MG/D ]
     Route: 064
     Dates: start: 20190725, end: 20191128
  2. BISOHEXAL [Concomitant]
     Active Substance: BISOPROLOL FUMARATE
     Indication: HYPERTENSION
     Dosage: 2.5 [MG/D ]
     Route: 064
     Dates: start: 20190725, end: 20191128

REACTIONS (8)
  - Hypertonia neonatal [Recovered/Resolved]
  - Hypoxic-ischaemic encephalopathy [Recovered/Resolved]
  - Foetal exposure during pregnancy [Unknown]
  - Seizure [Recovered/Resolved]
  - Hypertension neonatal [Unknown]
  - Opisthotonus [Recovered/Resolved]
  - Pyelocaliectasis [Unknown]
  - Renal fusion anomaly [Not Recovered/Not Resolved]

NARRATIVE: CASE EVENT DATE: 20200405
